FAERS Safety Report 9314893 (Version 1)
Quarter: 2013Q2

REPORT INFORMATION
  Report Type: Spontaneous
  Country: BR (occurrence: BR)
  Receive Date: 20130529
  Receipt Date: 20130529
  Transmission Date: 20140414
  Serious: Yes (Hospitalization)
  Sender: FDA-Public Use
  Company Number: BR-MERCK-1304BRA005473

PATIENT
  Age: 54 Year
  Sex: Female
  Weight: 75 kg

DRUGS (4)
  1. PEG-INTRON [Suspect]
     Indication: HEPATITIS C
     Dosage: 80 MICROGRAM, QW
     Route: 058
     Dates: start: 201203, end: 201303
  2. SELO-ZOK [Concomitant]
     Indication: MITRAL VALVE INCOMPETENCE
     Dosage: 25 MG, QD
     Dates: start: 201211
  3. MAXIDRATE [Concomitant]
     Indication: NASAL DRYNESS
     Dosage: UNK
     Route: 045
     Dates: start: 2003
  4. RIBAVIRIN [Concomitant]
     Indication: HEPATITIS C
     Dosage: 500 MG, BID
     Dates: start: 201203, end: 201303

REACTIONS (12)
  - Hospitalisation [Unknown]
  - Hospitalisation [Unknown]
  - Ammonia increased [Not Recovered/Not Resolved]
  - Vomiting [Recovered/Resolved]
  - Somnolence [Recovered/Resolved]
  - Feeling abnormal [Unknown]
  - Amnesia [Unknown]
  - Confusional state [Not Recovered/Not Resolved]
  - Headache [Recovered/Resolved]
  - Diarrhoea [Recovered/Resolved]
  - Asthenia [Recovered/Resolved]
  - Drug ineffective [Unknown]
